FAERS Safety Report 25097875 (Version 1)
Quarter: 2025Q1

REPORT INFORMATION
  Report Type: Spontaneous
  Country: US (occurrence: US)
  Receive Date: 20250320
  Receipt Date: 20250320
  Transmission Date: 20250409
  Serious: Yes (Death, Other)
  Sender: ALKEM
  Company Number: US-ALKEM LABORATORIES LIMITED-US-ALKEM-2025-02985

PATIENT

DRUGS (1)
  1. SIROLIMUS [Suspect]
     Active Substance: SIROLIMUS
     Indication: Prophylaxis against graft versus host disease
     Dosage: 1 MILLIGRAM/SQ. METER, QD (STARTING DOSE) (MAXIMUM 2 MG)
     Route: 065

REACTIONS (2)
  - Acute respiratory distress syndrome [Fatal]
  - Neuropathy peripheral [Unknown]

NARRATIVE: CASE EVENT DATE: 20190106
